FAERS Safety Report 4723500-3 (Version None)
Quarter: 2005Q3

REPORT INFORMATION
  Report Type: 
  Country: None (occurrence: None)
  Receive Date: 20050725
  Receipt Date: 20041008
  Transmission Date: 20060218
  Serious: No
  Sender: FDA-Public Use
  Company Number: US-GLAXOSMITHKLINE-A0529116A

PATIENT
  Age: 65 Year
  Sex: Male
  Weight: 97.7 kg

DRUGS (5)
  1. DYAZIDE [Suspect]
     Indication: HYPERTENSION
     Dosage: 25MG PER DAY
     Route: 048
     Dates: start: 20041003, end: 20041003
  2. TOPROL-XL [Concomitant]
  3. ASPIRIN [Concomitant]
  4. GLUCOSAMINE [Concomitant]
  5. FISH OIL [Concomitant]

REACTIONS (2)
  - MICTURITION DISORDER [None]
  - URINARY HESITATION [None]
